FAERS Safety Report 7978645-1 (Version None)
Quarter: 2011Q4

REPORT INFORMATION
  Report Type: 
  Country: None (occurrence: None)
  Receive Date: 20111214
  Receipt Date: 20111206
  Transmission Date: 20120403
  Serious: Yes (Other)
  Sender: FDA-Public Use
  Company Number: IL-SANOFI-AVENTIS-2011SA080385

PATIENT
  Age: 79 Year
  Sex: Female

DRUGS (5)
  1. NORMITEN [Concomitant]
  2. ATACAND [Concomitant]
     Dosage: 12.5 MG (NOS) AND 8 MG (NOS)
  3. IRON [Concomitant]
     Route: 042
  4. PLAVIX [Suspect]
     Indication: MYOCARDIAL INFARCTION
     Route: 048
  5. FOLIC ACID [Concomitant]

REACTIONS (1)
  - ANAEMIA [None]
